FAERS Safety Report 9695179 (Version 2)
Quarter: 2013Q4

REPORT INFORMATION
  Report Type: Report from Study
  Country: DE (occurrence: DE)
  Receive Date: 20131119
  Receipt Date: 20131119
  Transmission Date: 20140711
  Serious: Yes (Hospitalization)
  Sender: FDA-Public Use
  Company Number: DE-ABBVIE-13P-062-1066281-00

PATIENT
  Age: 49 Year
  Sex: Female
  Weight: 74 kg

DRUGS (4)
  1. HUMIRA [Suspect]
     Indication: CROHN^S DISEASE
     Dosage: 40 MG EOW
     Route: 058
     Dates: start: 20121218
  2. ANTIBIOTICS [Concomitant]
     Indication: CROHN^S DISEASE
     Dates: start: 2012
  3. MUTAFLOR [Concomitant]
     Indication: PRODUCT USED FOR UNKNOWN INDICATION
  4. L-THYROX [Concomitant]
     Indication: THYROID DISORDER
     Dosage: 75 ?G OD

REACTIONS (1)
  - Anal fistula [Recovered/Resolved]
